FAERS Safety Report 7392723-X (Version None)
Quarter: 2011Q2

REPORT INFORMATION
  Report Type: 
  Country: None (occurrence: None)
  Receive Date: 20110404
  Receipt Date: 20110329
  Transmission Date: 20111010
  Serious: Yes (Death)
  Sender: FDA-Public Use
  Company Number: BE-PFIZER INC-2011070406

PATIENT
  Age: 47 Year
  Sex: Male
  Weight: 50 kg

DRUGS (22)
  1. CELL CEPT [Concomitant]
     Dosage: 500 MG, 1X/DAY
     Route: 042
     Dates: start: 20110319, end: 20110319
  2. CELL CEPT [Concomitant]
     Dosage: 500 MG, 1X/DAY
     Route: 042
     Dates: start: 20110322, end: 20110322
  3. PARACETAMOL [Concomitant]
     Dosage: 1000 MG, 2X/DAY
     Route: 042
     Dates: start: 20110321, end: 20110321
  4. DIFLUCAN [Suspect]
     Indication: ANTIFUNGAL PROPHYLAXIS
     Dosage: 400 MG, 1X/DAY
     Route: 042
     Dates: start: 20110319, end: 20110321
  5. SOLU-MEDROL [Concomitant]
     Dosage: 40 MG, 1X/DAY
     Route: 042
     Dates: start: 20110321, end: 20110321
  6. LEVOPHED [Concomitant]
     Dosage: 0.351MG 1/DAY
     Dates: start: 20110320, end: 20110320
  7. CELL CEPT [Concomitant]
     Dosage: 500 MG, 2X/DAY
     Route: 042
     Dates: start: 20110320, end: 20110321
  8. SOLU-MEDROL [Concomitant]
     Dosage: 50 MG, 3X/DAY
     Route: 042
     Dates: start: 20110319, end: 20110319
  9. INSULIN PORCINE [Concomitant]
     Dosage: 10064 IU, UNK
     Route: 042
     Dates: start: 20110320
  10. ESCITALOPRAM [Concomitant]
     Dosage: 10 MG, UNK
     Dates: start: 20110321
  11. TAZOCIN [Concomitant]
     Dosage: 4 G, 2X/DAY
     Route: 042
     Dates: start: 20110320, end: 20110320
  12. LEVOPHED [Concomitant]
     Dosage: 2.526 MG, 1/XDAY
     Dates: start: 20110319, end: 20110319
  13. LASIX [Concomitant]
     Dosage: 20 MG, UNK
     Route: 042
     Dates: start: 20110318
  14. LASIX [Concomitant]
     Dosage: 20 MG, UNK
     Route: 042
     Dates: start: 20110320
  15. MORPHINE [Concomitant]
     Dosage: 4 MG, UNK
     Route: 042
     Dates: start: 20110320
  16. SOLU-MEDROL [Concomitant]
     Dosage: 40 MG, 3X/DAY
     Route: 042
     Dates: start: 20110320, end: 20110320
  17. CLEXANE [Concomitant]
     Dosage: 40 MG, UNK
     Route: 058
     Dates: start: 20110321
  18. SOLU-MEDROL [Concomitant]
     Dosage: 30 MG, 3X/DAY
     Route: 042
     Dates: start: 20110321, end: 20110321
  19. INSULIN PORCINE [Concomitant]
     Dosage: 502083 IU, 1X/DAY
     Route: 042
     Dates: start: 20110322
  20. ESCITALOPRAM [Concomitant]
     Dosage: 10 MG, UNK
     Route: 048
     Dates: start: 20110318
  21. SOLU-MEDROL [Concomitant]
     Dosage: 50 MG, 1X/DAY
     Route: 042
     Dates: start: 20110320, end: 20110320
  22. TAZOCIN [Concomitant]
     Dosage: 4 G, 4X/DAY
     Route: 042
     Dates: start: 20110321, end: 20110321

REACTIONS (1)
  - CIRCULATORY COLLAPSE [None]
